FAERS Safety Report 4350259-4 (Version None)
Quarter: 2004Q2

REPORT INFORMATION
  Report Type: 
  Country: None (occurrence: None)
  Receive Date: 20040427
  Receipt Date: 20030410
  Transmission Date: 20050107
  Serious: No
  Sender: FDA-Public Use
  Company Number: 000517

PATIENT
  Age: 44 Year
  Sex: Male
  Weight: 80.3 kg

DRUGS (6)
  1. ZEVALIN [Suspect]
     Indication: NON-HODGKIN'S LYMPHOMA
     Dosage: 520 MG, SINGLE, RITUXAN DOSE 1, INTRAVENOUS; 5 MCI, SINGLE, IN-[111] ZEVALIN, INTRAVENOUS
     Route: 042
     Dates: start: 20020709, end: 20020709
  2. ZEVALIN [Suspect]
     Indication: NON-HODGKIN'S LYMPHOMA
     Dosage: 520 MG, SINGLE, RITUXAN DOSE 1, INTRAVENOUS; 5 MCI, SINGLE, IN-[111] ZEVALIN, INTRAVENOUS
     Route: 042
     Dates: start: 20020709, end: 20020709
  3. ZEVALIN [Suspect]
     Dosage: 520 MG, SINGLE, RITUXAN DOSE 2, INTRAVENOUS; 33.27 MCI, SINGLE Y-[90] ZEVALIN, INTRAVENOUS
     Route: 042
     Dates: start: 20020717, end: 20020717
  4. ZEVALIN [Suspect]
     Dosage: 520 MG, SINGLE, RITUXAN DOSE 2, INTRAVENOUS; 33.27 MCI, SINGLE Y-[90] ZEVALIN, INTRAVENOUS
     Route: 042
     Dates: start: 20020717, end: 20020717
  5. DIFLUCAN [Concomitant]
  6. NEUPOGEN [Concomitant]

REACTIONS (1)
  - DISEASE PROGRESSION [None]
